FAERS Safety Report 4604725-4 (Version None)
Quarter: 2005Q1

REPORT INFORMATION
  Report Type: 
  Country: None (occurrence: None)
  Receive Date: 20050217
  Receipt Date: 20041105
  Transmission Date: 20050727
  Serious: No
  Sender: FDA-Public Use
  Company Number: S04-USA-07250-01

PATIENT
  Age: 51 Year
  Sex: Female

DRUGS (10)
  1. NAMENDA [Suspect]
     Indication: AMNESIA
     Dosage: 5 MG QD PO
     Route: 048
     Dates: start: 20041022, end: 20041104
  2. EXELON [Concomitant]
  3. HYDROCHLOROTHIAZIDE [Concomitant]
  4. CLARITIN [Concomitant]
  5. SINGULAIR [Concomitant]
  6. NASONEX [Concomitant]
  7. TRILEPTAL [Concomitant]
  8. TOPAMAX [Concomitant]
  9. SYNTHROID [Concomitant]
  10. GABITRIL [Concomitant]

REACTIONS (2)
  - CONFUSIONAL STATE [None]
  - DIFFICULTY IN WALKING [None]
